FAERS Safety Report 17855932 (Version 2)
Quarter: 2021Q4

REPORT INFORMATION
  Report Type: Report from Study
  Country: DE (occurrence: DE)
  Receive Date: 20200603
  Receipt Date: 20211214
  Transmission Date: 20220304
  Serious: Yes (Death)
  Sender: FDA-Public Use
  Company Number: DE-ACCORD-183158

PATIENT
  Age: 46 Year
  Sex: Female

DRUGS (4)
  1. PEGFILGRASTIM [Suspect]
     Active Substance: PEGFILGRASTIM
     Indication: Febrile neutropenia
     Dosage: UNK
  2. FLURBIPROFEN [Concomitant]
     Active Substance: FLURBIPROFEN
     Dosage: UNK, PRN (AS NECESSARY)
  3. IBU-HEXAL-GS [Concomitant]
     Dosage: 684 MILLIGRAM, PRN
  4. XYLOMETAZOLINE HYDROCHLORIDE [Concomitant]
     Active Substance: XYLOMETAZOLINE HYDROCHLORIDE
     Dosage: UNK

REACTIONS (1)
  - Nasopharyngitis [Fatal]

NARRATIVE: CASE EVENT DATE: 20200323
